FAERS Safety Report 16401855 (Version 1)
Quarter: 2019Q2

REPORT INFORMATION
  Report Type: Spontaneous
  Country: FR (occurrence: FR)
  Receive Date: 20190607
  Receipt Date: 20190607
  Transmission Date: 20190711
  Serious: Yes (Hospitalization)
  Sender: FDA-Public Use
  Company Number: FR-TEVA-2019-FR-1058945

PATIENT
  Age: 86 Year
  Sex: Male
  Weight: 61 kg

DRUGS (3)
  1. CEFTRIAXONE BASE [Suspect]
     Active Substance: CEFTRIAXONE
     Indication: CHOLANGITIS ACUTE
     Dates: start: 20180823, end: 20180828
  2. AMOXICILLINE [Suspect]
     Active Substance: AMOXICILLIN
     Indication: CHOLANGITIS ACUTE
     Route: 048
     Dates: start: 20180828, end: 20180901
  3. METRONIDAZOLE. [Suspect]
     Active Substance: METRONIDAZOLE
     Indication: CHOLANGITIS ACUTE
     Dates: start: 20180823, end: 20180828

REACTIONS (4)
  - Vomiting [Recovered/Resolved]
  - Nausea [Recovered/Resolved]
  - Dehydration [Recovered/Resolved]
  - Malnutrition [Recovered/Resolved]

NARRATIVE: CASE EVENT DATE: 20180829
